FAERS Safety Report 11939405 (Version 1)
Quarter: 2016Q1

REPORT INFORMATION
  Report Type: Report from Study
  Country: US (occurrence: US)
  Receive Date: 20160122
  Receipt Date: 20160122
  Transmission Date: 20160526
  Serious: Yes (Other)
  Sender: FDA-Public Use
  Company Number: US-AMGEN-USASL2016005587

PATIENT
  Age: 41 Year
  Sex: Female

DRUGS (1)
  1. ENBREL [Suspect]
     Active Substance: ETANERCEPT
     Indication: PSORIATIC ARTHROPATHY
     Dosage: 50 MG, QWK
     Route: 065
     Dates: start: 20160107

REACTIONS (7)
  - Dental care [Unknown]
  - Pruritus [Unknown]
  - Pain in extremity [Unknown]
  - Back pain [Unknown]
  - Psoriasis [Unknown]
  - Procedural haemorrhage [Unknown]
  - Arthritis [Unknown]

NARRATIVE: CASE EVENT DATE: 201601
